FAERS Safety Report 24388609 (Version 1)
Quarter: 2024Q4

REPORT INFORMATION
  Report Type: Report from Study
  Country: US (occurrence: US)
  Receive Date: 20241002
  Receipt Date: 20241002
  Transmission Date: 20250115
  Serious: Yes (Other)
  Sender: ALEXION PHARMACEUTICALS
  Company Number: US-AstraZeneca-CH-00677625A

PATIENT

DRUGS (2)
  1. SOLIRIS [Suspect]
     Active Substance: ECULIZUMAB
     Indication: Myasthenia gravis
     Dosage: UNK
     Route: 065
  2. PREDNISONE [Concomitant]
     Active Substance: PREDNISONE
     Indication: Product used for unknown indication
     Dosage: 5 MILLIGRAM, QD
     Route: 065

REACTIONS (8)
  - Myocardial infarction [Unknown]
  - Blindness unilateral [Unknown]
  - Macular degeneration [Unknown]
  - Aortic occlusion [Unknown]
  - Night sweats [Unknown]
  - Asthenia [Unknown]
  - COVID-19 [Unknown]
  - Balance disorder [Unknown]
